FAERS Safety Report 24992981 (Version 2)
Quarter: 2025Q1

REPORT INFORMATION
  Report Type: Spontaneous
  Country: IT (occurrence: IT)
  Receive Date: 20250221
  Receipt Date: 20250304
  Transmission Date: 20250408
  Serious: Yes (Death, Other)
  Sender: IDORSIA PHARMACEUTICALS
  Company Number: IT-IDORSIA-009389-2025-IT

PATIENT
  Age: 75 Year
  Sex: Male
  Weight: 110 kg

DRUGS (5)
  1. QUVIVIQ [Suspect]
     Active Substance: DARIDOREXANT
     Indication: Insomnia
     Route: 065
     Dates: start: 20250201, end: 20250216
  2. QUVIVIQ [Suspect]
     Active Substance: DARIDOREXANT
     Indication: Depression
  3. ESCITALOPRAM [Concomitant]
     Active Substance: ESCITALOPRAM OXALATE
     Indication: Depression
  4. VALPROIC ACID [Concomitant]
     Active Substance: VALPROIC ACID
     Indication: Depression
  5. Tavor [Concomitant]

REACTIONS (2)
  - Completed suicide [Fatal]
  - Multiple injuries [Fatal]

NARRATIVE: CASE EVENT DATE: 20250217
